FAERS Safety Report 20048192 (Version 3)
Quarter: 2021Q4

REPORT INFORMATION
  Report Type: Spontaneous
  Country: US (occurrence: US)
  Receive Date: 20211109
  Receipt Date: 20211129
  Transmission Date: 20220304
  Serious: No
  Sender: FDA-Public Use
  Company Number: US-NOVARTISTESTPH-NVSC2021US255268

PATIENT
  Sex: Female

DRUGS (2)
  1. MEKINIST [Suspect]
     Active Substance: TRAMETINIB DIMETHYL SULFOXIDE
     Indication: Histiocytosis
     Dosage: 2 MG EVERY DAY
     Route: 065
     Dates: start: 202101
  2. TAFINLAR [Suspect]
     Active Substance: DABRAFENIB MESYLATE
     Indication: Autoimmune disorder
     Dosage: 150 MG, BID
     Route: 065
     Dates: start: 202101

REACTIONS (2)
  - Hypertension [Unknown]
  - Product use in unapproved indication [Unknown]
